FAERS Safety Report 5032256-9 (Version None)
Quarter: 2006Q2

REPORT INFORMATION
  Report Type: 
  Country: None (occurrence: None)
  Receive Date: 20060619
  Receipt Date: 20060605
  Transmission Date: 20061013
  Serious: Yes (Hospitalization)
  Sender: FDA-Public Use
  Company Number: US200512004220

PATIENT
  Age: 83 Year
  Sex: Female

DRUGS (8)
  1. FORTEO [Suspect]
     Indication: OSTEOARTHRITIS
  2. FORTEO PEN                 (FORTEO PEN) [Concomitant]
  3. ZOLOFT [Concomitant]
  4. DURAGESIC-100 [Concomitant]
  5. SPIRIVA [Concomitant]
  6. CALCIUM WITH VITAMIN D [Concomitant]
  7. LASIX [Concomitant]
  8. TYLENOL (CAPLET) [Concomitant]

REACTIONS (4)
  - COMPRESSION FRACTURE [None]
  - FALL [None]
  - FEMUR FRACTURE [None]
  - PHARMACEUTICAL PRODUCT COMPLAINT [None]
